FAERS Safety Report 11419709 (Version 1)
Quarter: 2015Q3

REPORT INFORMATION
  Report Type: Spontaneous
  Country: US (occurrence: None)
  Receive Date: 20150825
  Receipt Date: 20150825
  Transmission Date: 20151125
  Serious: Yes (Life-Threatening)
  Sender: FDA-Public Use
  Company Number: None

PATIENT
  Age: 19 Year
  Sex: Female
  Weight: 74.84 kg

DRUGS (3)
  1. NOVOLOG [Concomitant]
     Active Substance: INSULIN ASPART
  2. INSULIN [Suspect]
     Active Substance: INSULIN NOS
  3. MEDTRONIC MINIMED PAADIGM INSULIN PUMP [Concomitant]

REACTIONS (3)
  - Incorrect dose administered by device [None]
  - Blood glucose fluctuation [None]
  - Device breakage [None]

NARRATIVE: CASE EVENT DATE: 20150719
